FAERS Safety Report 9719231 (Version 2)
Quarter: 2014Q1

REPORT INFORMATION
  Report Type: Report from Study
  Country: BR (occurrence: BR)
  Receive Date: 20131127
  Receipt Date: 20140219
  Transmission Date: 20141002
  Serious: Yes (Other)
  Sender: FDA-Public Use
  Company Number: PHHY2013BR134773

PATIENT
  Age: 69 Year
  Sex: Female
  Weight: 82.5 kg

DRUGS (3)
  1. DIOVAN [Suspect]
     Indication: HYPERTENSION
     Dosage: 1 DF, DAILY, (80 MG)
     Route: 048
     Dates: end: 201306
  2. DIOVAN [Suspect]
     Dosage: 1 DF, (160 MG) A DAY
     Route: 048
     Dates: start: 201307
  3. SIMVASTATIN [Concomitant]
     Indication: BLOOD CHOLESTEROL ABNORMAL
     Dosage: UNK UKN, UNK

REACTIONS (7)
  - Cardiac valve disease [Recovering/Resolving]
  - Mitral valve disease [Unknown]
  - Tachycardia [Recovering/Resolving]
  - Gastrooesophageal reflux disease [Recovering/Resolving]
  - Coagulopathy [Unknown]
  - Fatigue [Recovering/Resolving]
  - Hypotension [Recovering/Resolving]
